FAERS Safety Report 16372672 (Version 1)
Quarter: 2019Q2

REPORT INFORMATION
  Report Type: Report from Study
  Country: US (occurrence: US)
  Receive Date: 20190530
  Receipt Date: 20190530
  Transmission Date: 20190711
  Serious: Yes (Other)
  Sender: FDA-Public Use
  Company Number: US-BAYER-2019-099595

PATIENT
  Sex: Male
  Weight: 90.7 kg

DRUGS (1)
  1. STIVARGA [Suspect]
     Active Substance: REGORAFENIB
     Indication: COLON CANCER METASTATIC
     Dosage: 160 MG, QD FOR 21 DAYS
     Route: 048

REACTIONS (2)
  - Nephropathy toxic [Unknown]
  - Drug-induced liver injury [Unknown]
